FAERS Safety Report 7499012-3 (Version None)
Quarter: 2011Q2

REPORT INFORMATION
  Report Type: 
  Country: None (occurrence: None)
  Receive Date: 20110524
  Receipt Date: 20110523
  Transmission Date: 20111010
  Serious: Yes (Other)
  Sender: FDA-Public Use
  Company Number: US-ROXANE LABORATORIES, INC.-2011-RO-00609RO

PATIENT
  Sex: Female
  Weight: 54 kg

DRUGS (16)
  1. BONIVA [Concomitant]
     Indication: OSTEOPOROSIS
     Dates: start: 20101001
  2. GLUCOSAMINE [Concomitant]
  3. CIPRO [Concomitant]
     Indication: URINARY TRACT INFECTION
     Dosage: 500 MG
     Dates: start: 20101123
  4. ASPIRIN [Concomitant]
     Dosage: 81 MCG
  5. VITAMIN B-12 [Concomitant]
  6. BIOTIN [Concomitant]
  7. SIMVASTATIN [Concomitant]
     Dosage: 20 MG
  8. VOLTAREN [Concomitant]
     Indication: ARTHRITIS
     Route: 061
  9. ULTRAM [Concomitant]
     Indication: PAIN
  10. PREDNISONE [Suspect]
     Indication: RHEUMATOID ARTHRITIS
     Dates: start: 20101123
  11. METFORMIN HCL [Concomitant]
     Indication: DIABETES MELLITUS
     Dosage: 2000 MG
  12. DOCUSATE SODIUM [Concomitant]
     Indication: FAECES HARD
  13. GLIPIZIDE [Concomitant]
     Indication: DIABETES MELLITUS
     Dates: start: 20101123
  14. SYNTHROID [Concomitant]
     Indication: HYPOTHYROIDISM
     Dosage: 50 MCG
  15. BILBERRY [Concomitant]
  16. ACTOS [Suspect]
     Indication: TYPE 2 DIABETES MELLITUS
     Dosage: 30 MG
     Route: 048
     Dates: start: 20100101, end: 20101130

REACTIONS (9)
  - CYSTITIS [None]
  - OEDEMA PERIPHERAL [None]
  - POLLAKIURIA [None]
  - DECREASED APPETITE [None]
  - DYSPNOEA [None]
  - CARDIAC FAILURE [None]
  - DYSURIA [None]
  - URINE ODOUR ABNORMAL [None]
  - DEPRESSION [None]
